FAERS Safety Report 6673879-0 (Version None)
Quarter: 2010Q2

REPORT INFORMATION
  Report Type: 
  Country: None (occurrence: None)
  Receive Date: 20100409
  Receipt Date: 20100331
  Transmission Date: 20101027
  Serious: Yes (Hospitalization)
  Sender: FDA-Public Use
  Company Number: US-BIOGENIDEC-2010BI010951

PATIENT
  Age: 42 Year
  Sex: Female
  Weight: 99 kg

DRUGS (1)
  1. TYSABRI [Suspect]
     Indication: MULTIPLE SCLEROSIS
     Route: 042
     Dates: start: 20060807

REACTIONS (11)
  - ABASIA [None]
  - AMNESIA [None]
  - ASTHENIA [None]
  - BLOOD GLUCOSE FLUCTUATION [None]
  - CONCUSSION [None]
  - FALL [None]
  - HEAD INJURY [None]
  - LOSS OF CONSCIOUSNESS [None]
  - MANIA [None]
  - MULTIPLE SCLEROSIS RELAPSE [None]
  - VOMITING [None]
